FAERS Safety Report 7798971-9 (Version None)
Quarter: 2011Q4

REPORT INFORMATION
  Report Type: 
  Country: None (occurrence: None)
  Receive Date: 20111006
  Receipt Date: 20110928
  Transmission Date: 20120403
  Serious: Yes (Other)
  Sender: FDA-Public Use
  Company Number: JP-ASTELLAS-2011JP006885

PATIENT
  Age: 32 Year
  Sex: Female

DRUGS (1)
  1. PROGRAF [Suspect]
     Dosage: UNK
     Route: 048

REACTIONS (5)
  - ACUTE GRAFT VERSUS HOST DISEASE [None]
  - PNEUMONIA [None]
  - DRUG INEFFECTIVE [None]
  - HERPES ZOSTER [None]
  - CHRONIC GRAFT VERSUS HOST DISEASE [None]
